FAERS Safety Report 7913622-8 (Version None)
Quarter: 2011Q4

REPORT INFORMATION
  Report Type: 
  Country: None (occurrence: None)
  Receive Date: 20111110
  Receipt Date: 20111027
  Transmission Date: 20120403
  Serious: Yes (Other)
  Sender: FDA-Public Use
  Company Number: TPA2011A06217

PATIENT
  Age: 66 Year
  Sex: Female

DRUGS (2)
  1. ACTOS [Suspect]
     Indication: TYPE 2 DIABETES MELLITUS
  2. DUETACT [Suspect]
     Indication: TYPE 2 DIABETES MELLITUS

REACTIONS (1)
  - NO ADVERSE EVENT [None]
